FAERS Safety Report 6203329-X (Version None)
Quarter: 2009Q2

REPORT INFORMATION
  Report Type: 
  Country: None (occurrence: None)
  Receive Date: 20090527
  Receipt Date: 20090521
  Transmission Date: 20091009
  Serious: Yes (Other)
  Sender: FDA-Public Use
  Company Number: CA-ASTRAZENECA-2009UW13030

PATIENT
  Sex: Female

DRUGS (1)
  1. CRESTOR [Suspect]
     Route: 048
     Dates: start: 20090101, end: 20090520

REACTIONS (3)
  - HYPERHIDROSIS [None]
  - MUSCLE SPASMS [None]
  - PAIN IN EXTREMITY [None]
